FAERS Safety Report 4511362-9 (Version None)
Quarter: 2004Q4

REPORT INFORMATION
  Report Type: 
  Country: None (occurrence: None)
  Receive Date: 20041123
  Receipt Date: 20041123
  Transmission Date: 20050328
  Serious: Yes (Other)
  Sender: FDA-Public Use
  Company Number: None

PATIENT
  Sex: Female
  Weight: 62.5964 kg

DRUGS (1)
  1. ENBREL [Suspect]
     Indication: PSORIASIS
     Dosage: 25 MG SQ 2 X WEEK
     Route: 058

REACTIONS (3)
  - CONDITION AGGRAVATED [None]
  - ECZEMA WEEPING [None]
  - SCAB [None]
